FAERS Safety Report 6573934-X (Version None)
Quarter: 2010Q1

REPORT INFORMATION
  Report Type: 
  Country: None (occurrence: None)
  Receive Date: 20100201
  Receipt Date: 20100119
  Transmission Date: 20100710
  Serious: Yes (Death)
  Sender: FDA-Public Use
  Company Number: 1000011516

PATIENT
  Age: 38 Year
  Sex: Female
  Weight: 57 kg

DRUGS (4)
  1. CELEXA [Suspect]
     Dosage: 10 MG (10 MG, 1 IN 1 D), ORAL
     Route: 048
  2. CLONAZEPAM [Concomitant]
  3. SEROQUEL [Concomitant]
  4. ZOPICLONE (TABLETS) [Concomitant]

REACTIONS (4)
  - COMPLETED SUICIDE [None]
  - CRYING [None]
  - FLAT AFFECT [None]
  - STARING [None]
